FAERS Safety Report 18491162 (Version 7)
Quarter: 2021Q2

REPORT INFORMATION
  Report Type: Report from Study
  Country: BR (occurrence: BR)
  Receive Date: 20201111
  Receipt Date: 20210628
  Transmission Date: 20210717
  Serious: Yes (Hospitalization, Other)
  Sender: FDA-Public Use
  Company Number: BR-GLAXOSMITHKLINE-BR2019AMR237103

PATIENT
  Age: 68 Year
  Sex: Female
  Weight: 83 kg

DRUGS (16)
  1. LEVOTHYROXINE. [Concomitant]
     Active Substance: LEVOTHYROXINE
     Dosage: 50 MG
  2. BELIMUMAB [Suspect]
     Active Substance: BELIMUMAB
     Dosage: 880 MG + SALINE 0.9% 500ML, IN ONE HOUR
     Route: 042
     Dates: start: 20200429, end: 20200820
  3. CYCLOSPORINE. [Concomitant]
     Active Substance: CYCLOSPORINE
  4. FOLIC ACID. [Concomitant]
     Active Substance: FOLIC ACID
  5. OMEPRAZOLE. [Concomitant]
     Active Substance: OMEPRAZOLE
     Dosage: 20 MG, QD
  6. BELIMUMAB [Suspect]
     Active Substance: BELIMUMAB
     Dosage: UNK
     Dates: start: 20210518
  7. BISOPROLOL [Concomitant]
     Active Substance: BISOPROLOL
     Dosage: 2.5 MG, QD
  8. BELIMUMAB [Suspect]
     Active Substance: BELIMUMAB
     Dosage: UNK
     Dates: start: 20210305
  9. SERTRALINE [Concomitant]
     Active Substance: SERTRALINE HYDROCHLORIDE
     Dosage: 100 MG
  10. BELIMUMAB [Suspect]
     Active Substance: BELIMUMAB
     Indication: SYSTEMIC LUPUS ERYTHEMATOSUS
     Dosage: 10 MG/KG, MONTHLY DOSE
     Route: 042
     Dates: start: 201512
  11. BELIMUMAB [Suspect]
     Active Substance: BELIMUMAB
     Dosage: UNK
     Dates: start: 20210615
  12. BACTRIM [Suspect]
     Active Substance: SULFAMETHOXAZOLE\TRIMETHOPRIM
     Indication: URINARY TRACT INFECTION
     Dosage: UNK
  13. METHOTREXATE. [Concomitant]
     Active Substance: METHOTREXATE
     Indication: PRODUCT USED FOR UNKNOWN INDICATION
     Dosage: 10 TABLET/WEEK
  14. ROSUVASTATIN. [Concomitant]
     Active Substance: ROSUVASTATIN
     Dosage: 10 MG
  15. BELIMUMAB [Suspect]
     Active Substance: BELIMUMAB
     Dosage: UNK
     Dates: end: 20210105
  16. AZATHIOPRINE. [Concomitant]
     Active Substance: AZATHIOPRINE

REACTIONS (19)
  - Systemic lupus erythematosus [Recovered/Resolved]
  - Urinary tract infection [Unknown]
  - Malaise [Unknown]
  - Escherichia urinary tract infection [Recovered/Resolved]
  - Anaemia [Unknown]
  - Inappropriate schedule of product administration [Unknown]
  - Inappropriate schedule of product administration [Recovered/Resolved]
  - Arthritis infective [Recovered/Resolved]
  - Weight decreased [Recovered/Resolved]
  - Skin discolouration [Unknown]
  - Pyrexia [Unknown]
  - Immune system disorder [Unknown]
  - Pain [Recovered/Resolved]
  - Illness [Unknown]
  - Hyperhidrosis [Unknown]
  - Dysgeusia [Unknown]
  - Stevens-Johnson syndrome [Recovered/Resolved]
  - Nasopharyngitis [Unknown]
  - Vomiting [Unknown]

NARRATIVE: CASE EVENT DATE: 202009
